FAERS Safety Report 4268837-X (Version None)
Quarter: 2004Q1

REPORT INFORMATION
  Report Type: 
  Country: None (occurrence: None)
  Receive Date: 20040108
  Receipt Date: 20031229
  Transmission Date: 20041129
  Serious: Yes (Hospitalization, Other)
  Sender: FDA-Public Use
  Company Number: 2003114751

PATIENT
  Age: 47 Year
  Sex: Female
  Weight: 98 kg

DRUGS (3)
  1. DILANTIN [Suspect]
     Indication: CONVULSION
     Dosage: 300 MG (DAILY)
     Dates: start: 20030515
  2. HYDROCODONE BITARTRATE [Concomitant]
  3. CARISOPRODOL [Concomitant]

REACTIONS (9)
  - AGGRESSION [None]
  - ANXIETY [None]
  - CONDITION AGGRAVATED [None]
  - CONVULSION [None]
  - DELUSION [None]
  - INFECTION [None]
  - MEMORY IMPAIRMENT [None]
  - PSYCHOTIC DISORDER [None]
  - PYREXIA [None]
